FAERS Safety Report 9711165 (Version 1)
Quarter: 2013Q4

REPORT INFORMATION
  Report Type: Spontaneous
  Country: US (occurrence: US)
  Receive Date: 20131126
  Receipt Date: 20131126
  Transmission Date: 20140711
  Serious: No
  Sender: FDA-Public Use
  Company Number: US-BRISTOL-MYERS SQUIBB COMPANY-19181338

PATIENT
  Age: 74 Year
  Sex: Female
  Weight: 122.45 kg

DRUGS (2)
  1. BYETTA [Suspect]
     Dosage: INTER ON UNKNOWN DATE,RESTARTED ON 2007
     Route: 058
     Dates: start: 2005
  2. GLIMEPIRIDE [Suspect]

REACTIONS (3)
  - Weight decreased [Recovered/Resolved]
  - Abdominal discomfort [Unknown]
  - Glycosylated haemoglobin increased [Unknown]
